FAERS Safety Report 21248649 (Version 2)
Quarter: 2022Q3

REPORT INFORMATION
  Report Type: Report from Study
  Country: CA (occurrence: None)
  Receive Date: 20220824
  Receipt Date: 20220829
  Transmission Date: 20221027
  Serious: Yes (Hospitalization)
  Sender: FDA-Public Use
  Company Number: CA-Merck Healthcare KGaA-9345741

PATIENT
  Age: 48 Year
  Sex: Female

DRUGS (1)
  1. MAVENCLAD [Suspect]
     Active Substance: CLADRIBINE
     Indication: Multiple sclerosis
     Dosage: YEAR ONE WEEK ONE THERAPY
     Route: 048
     Dates: start: 20220211, end: 202202

REACTIONS (3)
  - Appendicitis [Unknown]
  - Post procedural haematoma [Recovered/Resolved]
  - Post procedural infection [Recovered/Resolved]

NARRATIVE: CASE EVENT DATE: 20220506
